FAERS Safety Report 16218999 (Version 2)
Quarter: 2019Q2

REPORT INFORMATION
  Report Type: Spontaneous
  Country: HU (occurrence: HU)
  Receive Date: 20190419
  Receipt Date: 20190423
  Transmission Date: 20190711
  Serious: Yes (Death, Hospitalization)
  Sender: FDA-Public Use
  Company Number: HU-B.I. PHARMACEUTICALS,INC./RIDGEFIELD-2019-BI-013725

PATIENT
  Age: 65 Year
  Sex: Male
  Weight: 100 kg

DRUGS (5)
  1. COVIOGAL [Concomitant]
     Active Substance: BISOPROLOL FUMARATE
     Indication: HYPERTENSION
     Route: 065
  2. MILURIT [Concomitant]
     Active Substance: ALLOPURINOL
     Indication: HYPERURICAEMIA
     Route: 065
  3. COVEREX AS KOMB [Concomitant]
     Indication: HYPERTENSION
     Route: 065
  4. COVEREX AS [Concomitant]
     Active Substance: PERINDOPRIL ARGININE
     Indication: HYPERTENSION
     Route: 065
  5. PRADAXA [Suspect]
     Active Substance: DABIGATRAN ETEXILATE MESYLATE
     Indication: ATRIAL FIBRILLATION
     Route: 065
     Dates: start: 201901, end: 20190325

REACTIONS (4)
  - Appendicitis perforated [Fatal]
  - Gastrointestinal necrosis [Fatal]
  - Bleeding time prolonged [Unknown]
  - Septic shock [Fatal]

NARRATIVE: CASE EVENT DATE: 201903
